FAERS Safety Report 22638657 (Version 1)
Quarter: 2023Q2

REPORT INFORMATION
  Report Type: Spontaneous
  Country: JP (occurrence: JP)
  Receive Date: 20230626
  Receipt Date: 20230626
  Transmission Date: 20230722
  Serious: Yes (Other)
  Sender: FDA-Public Use
  Company Number: JP-002147023-NVSJ2023JP003706

PATIENT
  Age: 76 Year
  Sex: Male

DRUGS (2)
  1. BEOVU [Suspect]
     Active Substance: BROLUCIZUMAB-DBLL
     Indication: Diabetic retinal oedema
     Dosage: 6 MG
     Route: 031
     Dates: start: 20230126, end: 20230126
  2. BEOVU [Suspect]
     Active Substance: BROLUCIZUMAB-DBLL
     Dosage: 6 MG, RIGHT EYE
     Route: 031
     Dates: start: 20230309, end: 20230309

REACTIONS (11)
  - Retinal degeneration [Unknown]
  - Retinal vascular occlusion [Recovered/Resolved]
  - Blindness transient [Recovered/Resolved]
  - Retinal vasculitis [Recovering/Resolving]
  - Retinal perivascular sheathing [Unknown]
  - Vitritis [Recovered/Resolved]
  - Keratic precipitates [Unknown]
  - Vitreous opacities [Unknown]
  - Iritis [Recovered/Resolved]
  - Anterior chamber flare [Recovered/Resolved]
  - Anterior chamber cell [Recovered/Resolved]

NARRATIVE: CASE EVENT DATE: 20230413
